FAERS Safety Report 9173650 (Version 1)
Quarter: 2013Q1

REPORT INFORMATION
  Report Type: Spontaneous
  Country: US (occurrence: None)
  Receive Date: 20130318
  Receipt Date: 20130318
  Transmission Date: 20140127
  Serious: Yes (Hospitalization, Disabling)
  Sender: FDA-Public Use
  Company Number: None

PATIENT
  Age: 66 Year
  Sex: Male
  Weight: 99.79 kg

DRUGS (2)
  1. ATORVASTATIN [Suspect]
     Indication: BLOOD CHOLESTEROL
     Route: 048
     Dates: start: 20090312, end: 20130313
  2. METFORMIN [Suspect]
     Indication: DIABETES MELLITUS
     Route: 048
     Dates: start: 20090312, end: 20130313

REACTIONS (9)
  - Muscle spasms [None]
  - Arthralgia [None]
  - Pain in extremity [None]
  - Fatigue [None]
  - Sensation of heaviness [None]
  - Synovial cyst [None]
  - Abasia [None]
  - Muscle atrophy [None]
  - Joint swelling [None]
